FAERS Safety Report 4846818-2 (Version None)
Quarter: 2005Q4

REPORT INFORMATION
  Report Type: 
  Country: None (occurrence: None)
  Receive Date: 20051207
  Receipt Date: 20051129
  Transmission Date: 20060501
  Serious: Yes (Other)
  Sender: FDA-Public Use
  Company Number: PHEH2005US13004

PATIENT
  Age: 75 Year
  Sex: Female

DRUGS (2)
  1. MIACALCIN [Suspect]
     Indication: OSTEOPOROSIS
     Dosage: 200 IU, QD
     Dates: start: 20000101
  2. ATENOLOL [Concomitant]

REACTIONS (3)
  - OESOPHAGEAL ACHALASIA [None]
  - REFUSAL OF TREATMENT BY PATIENT [None]
  - THYROID NEOPLASM [None]
